FAERS Safety Report 6546538-2 (Version None)
Quarter: 2010Q1

REPORT INFORMATION
  Report Type: 
  Country: None (occurrence: None)
  Receive Date: 20100120
  Receipt Date: 20091026
  Transmission Date: 20100710
  Serious: No
  Sender: FDA-Public Use
  Company Number: 2009-00690

PATIENT
  Age: 69 Year
  Sex: Female
  Weight: 68.0396 kg

DRUGS (6)
  1. COLD REMEDY ORAL MIST [Suspect]
     Dosage: QD FOR 4 DAYS
     Dates: start: 20091022, end: 20091026
  2. METFORMIN [Concomitant]
  3. ATENOLOL [Concomitant]
  4. HYDROCHLOROTHIAZIDE [Concomitant]
  5. LISINOPRIL [Concomitant]
  6. LOVASTATIN [Concomitant]

REACTIONS (1)
  - AGEUSIA [None]
